FAERS Safety Report 13434949 (Version 3)
Quarter: 2017Q2

REPORT INFORMATION
  Report Type: Report from Study
  Country: BE (occurrence: BE)
  Receive Date: 20170413
  Receipt Date: 20170602
  Transmission Date: 20170830
  Serious: Yes (Hospitalization)
  Sender: FDA-Public Use
  Company Number: BE-TEVA-741079ROM

PATIENT
  Age: 69 Year
  Sex: Male
  Weight: 87 kg

DRUGS (8)
  1. RESLIZUMAB [Suspect]
     Active Substance: RESLIZUMAB
     Indication: ASTHMA
     Dosage: DB: RESLIZUMAB OR PLACEBO; LAST DOSE BEFORE AE: 16-JAN-2017
     Route: 058
     Dates: start: 20160215
  2. SERETIDE [Concomitant]
     Active Substance: FLUTICASONE PROPIONATE\SALMETEROL XINAFOATE
     Indication: ASTHMA
     Dosage: 2 DOSAGE FORMS DAILY; 1 DOSAGE FORM (50 MCG SALMETEROL + 500 MCG FLUTICASON) TWICE DAILY
     Route: 055
     Dates: start: 2010
  3. VENTOLIN [Concomitant]
     Active Substance: ALBUTEROL SULFATE
     Indication: ASTHMA
     Route: 055
     Dates: start: 20160111
  4. MEDROL [Concomitant]
     Active Substance: METHYLPREDNISOLONE
     Indication: ASTHMA
     Dosage: 8 MILLIGRAM DAILY;
     Route: 048
     Dates: start: 20161211
  5. MEDROL [Concomitant]
     Active Substance: METHYLPREDNISOLONE
     Indication: ASTHMA
     Dosage: 16 MILLIGRAM DAILY;
     Route: 048
     Dates: start: 20170214, end: 20170214
  6. FLIXOTIDE [Concomitant]
     Active Substance: FLUTICASONE PROPIONATE
     Indication: ASTHMA
     Dosage: 1000 MICROGRAM DAILY;
     Route: 055
     Dates: start: 2010
  7. SYMBICORT [Concomitant]
     Active Substance: BUDESONIDE\FORMOTEROL FUMARATE DIHYDRATE
     Indication: ASTHMA
     Route: 055
     Dates: start: 2010
  8. AMOCLANE [Concomitant]
     Indication: ASTHMA
     Route: 048
     Dates: start: 20170210

REACTIONS (2)
  - Respiratory tract infection [Recovered/Resolved]
  - Pulmonary embolism [Recovered/Resolved]

NARRATIVE: CASE EVENT DATE: 20170214
